FAERS Safety Report 19789483 (Version 2)
Quarter: 2021Q4

REPORT INFORMATION
  Report Type: Spontaneous
  Country: US (occurrence: US)
  Receive Date: 20210905
  Receipt Date: 20211008
  Transmission Date: 20220303
  Serious: No
  Sender: FDA-Public Use
  Company Number: US-KALEO, INC.-2021KL000113

PATIENT
  Age: 14 Year
  Sex: Female

DRUGS (1)
  1. AUVI-Q [Suspect]
     Active Substance: EPINEPHRINE

REACTIONS (4)
  - Device issue [Not Recovered/Not Resolved]
  - Device optical issue [Not Recovered/Not Resolved]
  - Device physical property issue [Not Recovered/Not Resolved]
  - Device operational issue [Not Recovered/Not Resolved]
